FAERS Safety Report 5646320-4 (Version None)
Quarter: 2008Q1

REPORT INFORMATION
  Report Type: 
  Country: None (occurrence: None)
  Receive Date: 20080227
  Receipt Date: 20080227
  Transmission Date: 20080703
  Serious: Yes (Life-Threatening)
  Sender: FDA-Public Use
  Company Number: None

PATIENT
  Age: 30 Year
  Sex: Female

DRUGS (1)
  1. FENTANYL [Suspect]

REACTIONS (3)
  - HYPOVENTILATION [None]
  - OVERDOSE [None]
  - WITHDRAWAL SYNDROME [None]
